FAERS Safety Report 14276987 (Version 2)
Quarter: 2019Q2

REPORT INFORMATION
  Report Type: Spontaneous
  Country: JP (occurrence: JP)
  Receive Date: 20171211
  Receipt Date: 20190401
  Transmission Date: 20190711
  Serious: Yes (Hospitalization)
  Sender: FDA-Public Use
  Company Number: JP-BAYER-2017-195400

PATIENT
  Age: 30 Year
  Sex: Male

DRUGS (1)
  1. BILTRICIDE [Suspect]
     Active Substance: PRAZIQUANTEL
     Indication: DIPHYLLOBOTHRIASIS
     Dosage: 600 MG, QD
     Route: 048
     Dates: start: 20160510, end: 20160511

REACTIONS (10)
  - Rash generalised [Recovered/Resolved]
  - Generalised erythema [Recovered/Resolved]
  - Rash pustular [Recovered/Resolved]
  - Neutrophil count increased [Recovered/Resolved]
  - Product use in unapproved indication [None]
  - Off label use [None]
  - White blood cell count increased [Recovered/Resolved]
  - Pruritus [Recovered/Resolved]
  - Acute generalised exanthematous pustulosis [Recovered/Resolved]
  - Pyrexia [Recovered/Resolved]

NARRATIVE: CASE EVENT DATE: 20160511
